FAERS Safety Report 9331333 (Version 1)
Quarter: 2013Q2

REPORT INFORMATION
  Report Type: Spontaneous
  Country: US (occurrence: US)
  Receive Date: 20130605
  Receipt Date: 20130605
  Transmission Date: 20140414
  Serious: Yes (Life-Threatening, Hospitalization)
  Sender: FDA-Public Use
  Company Number: US-MYLANLABS-2013S1011293

PATIENT
  Age: 51 Year
  Sex: Female

DRUGS (4)
  1. FLUOROURACIL [Suspect]
     Indication: SMALL INTESTINE ADENOCARCINOMA
     Route: 041
  2. FOLINIC ACID [Suspect]
     Indication: SMALL INTESTINE ADENOCARCINOMA
     Route: 041
  3. OXALIPLATIN [Suspect]
     Indication: SMALL INTESTINE ADENOCARCINOMA
     Route: 041
  4. IRINOTECAN [Suspect]
     Indication: SMALL INTESTINE ADENOCARCINOMA
     Route: 041

REACTIONS (3)
  - Multi-organ failure [Recovered/Resolved]
  - Pancytopenia [Recovered/Resolved]
  - Renal failure [Recovered/Resolved]
